FAERS Safety Report 17428350 (Version 1)
Quarter: 2020Q1

REPORT INFORMATION
  Report Type: Report from Study
  Country: CO (occurrence: CO)
  Receive Date: 20200217
  Receipt Date: 20200217
  Transmission Date: 20200409
  Serious: Yes (Hospitalization)
  Sender: FDA-Public Use
  Company Number: CO-JNJFOC-20160322640

PATIENT
  Age: 22 Year
  Sex: Male
  Weight: 56 kg

DRUGS (2)
  1. RISPERDAL CONSTA [Suspect]
     Active Substance: RISPERIDONE
     Indication: SCHIZOPHRENIA
     Dosage: MOST RECENT DRUG ADMINISTRATION WAS PERFORMED ON 29-FEB-2016
     Route: 030
     Dates: start: 20140315
  2. VALPROIC ACID. [Concomitant]
     Active Substance: VALPROIC ACID
     Indication: PRODUCT USED FOR UNKNOWN INDICATION
     Route: 048

REACTIONS (7)
  - Ocular hyperaemia [Unknown]
  - Eye movement disorder [Unknown]
  - Decreased appetite [Unknown]
  - Anxiety [Unknown]
  - Eye disorder [Unknown]
  - Aggression [Unknown]
  - Abnormal behaviour [Unknown]

NARRATIVE: CASE EVENT DATE: 20160229
